FAERS Safety Report 10479233 (Version 1)
Quarter: 2014Q3

REPORT INFORMATION
  Report Type: Spontaneous
  Country: RS (occurrence: RS)
  Receive Date: 20140926
  Receipt Date: 20140926
  Transmission Date: 20150326
  Serious: Yes (Hospitalization)
  Sender: FDA-Public Use
  Company Number: RS-ACTAVIS-2014-20620

PATIENT
  Age: 20 Year
  Sex: Female

DRUGS (4)
  1. DIKLOFEN [Suspect]
     Active Substance: DICLOFENAC
     Indication: PYREXIA
     Dosage: UNK
     Route: 030
     Dates: start: 20140818, end: 20140818
  2. HEPASOL [Concomitant]
     Indication: PRODUCT USED FOR UNKNOWN INDICATION
     Dosage: ONE DAILY
     Route: 042
  3. OMEPROL [Suspect]
     Active Substance: OMEPRAZOLE
     Indication: FOOD POISONING
     Dosage: 20 MG, DAILY
     Route: 048
     Dates: start: 20140818, end: 20140902
  4. BACTRIM [Suspect]
     Active Substance: SULFAMETHOXAZOLE\TRIMETHOPRIM
     Indication: URINARY TRACT INFECTION
     Dosage: 4 INF. DAILY
     Route: 042
     Dates: start: 20140820, end: 20140827

REACTIONS (1)
  - Haemolytic anaemia [Recovering/Resolving]

NARRATIVE: CASE EVENT DATE: 20140825
